FAERS Safety Report 7263018-X (Version None)
Quarter: 2011Q1

REPORT INFORMATION
  Report Type: 
  Country: None (occurrence: None)
  Receive Date: 20110130
  Receipt Date: 20101014
  Transmission Date: 20110831
  Serious: No
  Sender: FDA-Public Use
  Company Number: US-ABBOTT-10P-163-0679011-00

PATIENT
  Sex: Female
  Weight: 72.64 kg

DRUGS (4)
  1. TRAMADOL HCL [Concomitant]
     Indication: PAIN
  2. XANAX [Concomitant]
     Indication: PRODUCT USED FOR UNKNOWN INDICATION
  3. HUMIRA [Suspect]
     Indication: CROHN'S DISEASE
     Dates: start: 20101013
  4. LAMICTAL [Concomitant]
     Indication: MOOD ALTERED

REACTIONS (4)
  - OROPHARYNGEAL PAIN [None]
  - PRURITUS [None]
  - POLLAKIURIA [None]
  - MOOD ALTERED [None]
